FAERS Safety Report 8303089-2 (Version None)
Quarter: 2012Q2

REPORT INFORMATION
  Report Type: 
  Country: None (occurrence: None)
  Receive Date: 20120423
  Receipt Date: 20120413
  Transmission Date: 20120825
  Serious: Yes (Other)
  Sender: FDA-Public Use
  Company Number: DE-BRISTOL-MYERS SQUIBB COMPANY-16387037

PATIENT
  Age: 50 Year
  Sex: Female

DRUGS (2)
  1. CARBOPLATIN [Suspect]
     Indication: BREAST CANCER METASTATIC
     Dosage: 1 DF : AUC 5
  2. TAXOL [Suspect]
     Indication: BREAST CANCER METASTATIC
     Dosage: 825MG/M2
     Dates: start: 20111229

REACTIONS (2)
  - VIITH NERVE PARALYSIS [None]
  - HERPES VIRUS INFECTION [None]
